FAERS Safety Report 8462175-7 (Version None)
Quarter: 2012Q2

REPORT INFORMATION
  Report Type: 
  Country: None (occurrence: None)
  Receive Date: 20120625
  Receipt Date: 20120611
  Transmission Date: 20120825
  Serious: Yes (Other)
  Sender: FDA-Public Use
  Company Number: GB-MYLANLABS-2012S1011925

PATIENT
  Sex: Female

DRUGS (5)
  1. ISOTRETINOIN [Suspect]
     Dates: start: 20110101, end: 20120401
  2. SIMVASTATIN [Concomitant]
     Indication: PRODUCT USED FOR UNKNOWN INDICATION
     Dates: start: 20060101
  3. DIANETTE [Concomitant]
     Indication: PRODUCT USED FOR UNKNOWN INDICATION
     Dates: start: 20060101
  4. ISOTRETINOIN [Suspect]
     Indication: ACNE
     Dates: start: 20060101
  5. ISOTRETINOIN [Suspect]
     Dates: start: 20061001, end: 20070701

REACTIONS (2)
  - PARAESTHESIA [None]
  - MULTIPLE SCLEROSIS [None]
